FAERS Safety Report 21068146 (Version 1)
Quarter: 2022Q3

REPORT INFORMATION
  Report Type: Spontaneous
  Country: US (occurrence: None)
  Receive Date: 20220711
  Receipt Date: 20220711
  Transmission Date: 20221026
  Serious: No
  Sender: FDA-Public Use
  Company Number: None

PATIENT
  Age: 48 Year
  Sex: Female
  Weight: 76.66 kg

DRUGS (16)
  1. PEGASYS [Suspect]
     Active Substance: PEGINTERFERON ALFA-2A
     Indication: Cutaneous T-cell lymphoma
     Dosage: 90MCG Q7DAYS SUBCUTANEOUSLY?
     Route: 058
  2. ABILIFY [Concomitant]
     Active Substance: ARIPIPRAZOLE
  3. BETAMETHASONE [Concomitant]
     Active Substance: BETAMETHASONE
  4. BREO ELLIPTA [Concomitant]
     Active Substance: FLUTICASONE FUROATE\VILANTEROL TRIFENATATE
  5. CLOBETASOL [Concomitant]
     Active Substance: CLOBETASOL
  6. CYANOCOBALAMIN [Concomitant]
     Active Substance: CYANOCOBALAMIN
  7. IMITREX [Concomitant]
     Active Substance: SUMATRIPTAN SUCCINATE
  8. KEPPRA [Concomitant]
     Active Substance: LEVETIRACETAM
  9. MOMETASONE [Concomitant]
     Active Substance: MOMETASONE
  10. PHENOBARBITAL [Concomitant]
  11. SINGULAIR [Concomitant]
     Active Substance: MONTELUKAST SODIUM
  12. TRAZODONE [Concomitant]
     Active Substance: TRAZODONE HYDROCHLORIDE
  13. TRIAMCINOLONE [Concomitant]
     Active Substance: TRIAMCINOLONE
  14. VENTOLIN [Concomitant]
     Active Substance: ALBUTEROL SULFATE
  15. VITAMIN D [Concomitant]
     Active Substance: VITAMIN D NOS
  16. VYVANSE [Concomitant]
     Active Substance: LISDEXAMFETAMINE DIMESYLATE

REACTIONS (2)
  - Drug ineffective [None]
  - White blood cell count decreased [None]
